FAERS Safety Report 8584043-2 (Version None)
Quarter: 2012Q3

REPORT INFORMATION
  Report Type: 
  Country: None (occurrence: None)
  Receive Date: 20120810
  Receipt Date: 20120720
  Transmission Date: 20120928
  Serious: No
  Sender: FDA-Public Use
  Company Number: US-009507513-1207USA010058

PATIENT

DRUGS (3)
  1. MK-0521 [Concomitant]
     Dosage: 20 MG, UNK
  2. PEG-INTRON [Suspect]
     Dosage: 120 MICROGRAM, QW
     Route: 058
  3. REBETOL [Suspect]
     Dosage: 200 MG, UNK

REACTIONS (3)
  - FATIGUE [None]
  - PLATELET COUNT DECREASED [None]
  - ANAEMIA [None]
